FAERS Safety Report 15308875 (Version 3)
Quarter: 2018Q4

REPORT INFORMATION
  Report Type: Report from Study
  Country: US (occurrence: US)
  Receive Date: 20180822
  Receipt Date: 20181004
  Transmission Date: 20190204
  Serious: Yes (Other)
  Sender: FDA-Public Use
  Company Number: US-ALEXION PHARMACEUTICALS INC.-A201810587

PATIENT
  Sex: Male

DRUGS (4)
  1. SOLIRIS [Suspect]
     Active Substance: ECULIZUMAB
     Dosage: UNK, EVERY 12 DAYS
     Route: 065
  2. SOLIRIS [Suspect]
     Active Substance: ECULIZUMAB
     Indication: PAROXYSMAL NOCTURNAL HAEMOGLOBINURIA
     Dosage: UNK, UNK
     Route: 065
  3. SOLIRIS [Suspect]
     Active Substance: ECULIZUMAB
     Dosage: UNK, EVERY 10 DAYS
     Route: 065
  4. SOLIRIS [Suspect]
     Active Substance: ECULIZUMAB
     Dosage: UNK, Q2W
     Route: 042

REACTIONS (12)
  - Apnoea [Unknown]
  - Haemoglobin decreased [Unknown]
  - Haemolysis [Unknown]
  - Inappropriate schedule of product administration [Unknown]
  - Dysphagia [Unknown]
  - Chest pain [Unknown]
  - Fatigue [Unknown]
  - Haemoglobinuria [Unknown]
  - Blood lactate dehydrogenase increased [Unknown]
  - Blood urine present [Unknown]
  - Flatulence [Unknown]
  - Insomnia [Unknown]
